FAERS Safety Report 16231922 (Version 1)
Quarter: 2019Q2

REPORT INFORMATION
  Report Type: Spontaneous
  Country: CH (occurrence: CH)
  Receive Date: 20190424
  Receipt Date: 20190424
  Transmission Date: 20190711
  Serious: Yes (Other)
  Sender: FDA-Public Use
  Company Number: CH-TEVA-2019-CH-1039016

PATIENT
  Age: 81 Year
  Sex: Female
  Weight: 59 kg

DRUGS (24)
  1. METHOTREXATE. [Suspect]
     Active Substance: METHOTREXATE
     Route: 058
     Dates: start: 201410, end: 20190111
  2. PREDNISONE. [Suspect]
     Active Substance: PREDNISONE
     Route: 048
     Dates: start: 20190122
  3. MARCOUMAR [Suspect]
     Active Substance: PHENPROCOUMON
     Dosage: MARCOUMAR 3MG N ACH INR (SEQUENZ: 6X 1/4, 1X 1/2) PAUSE AB 11.01.2019 BEI INR 4.4, ? AM 13.01.201...
     Dates: end: 20190111
  4. SYMBICORT [Concomitant]
     Active Substance: BUDESONIDE\FORMOTEROL FUMARATE DIHYDRATE
     Dates: end: 20190118
  5. PANTOZOL [Interacting]
     Active Substance: PANTOPRAZOLE SODIUM
     Dosage: PANTOZOL 40MG TBL. 1-0-0 BIS 24.01.2019, STATTDESSEN ESOMEP 40 MG AB 25.01.2019
     Route: 048
  6. CONCOR [Concomitant]
     Active Substance: BISOPROLOL FUMARATE
  7. LATANOPROST. [Concomitant]
     Active Substance: LATANOPROST
  8. VI DE 3 [Concomitant]
  9. VALTREX [Concomitant]
     Active Substance: VALACYCLOVIR HYDROCHLORIDE
     Dates: start: 20190116
  10. NOPIL [Interacting]
     Active Substance: SULFAMETHOXAZOLE\TRIMETHOPRIM
     Dates: start: 20190117
  11. SEROPRAM (CITALOPRAM HYDROBROMIDE) [Suspect]
     Active Substance: CITALOPRAM HYDROBROMIDE
     Dosage: CITALOPRAM 20MG TBL. 1-0-0, AB 11.01.2019 SEROPRAM
  12. TOREM [Interacting]
     Active Substance: TORSEMIDE
     Dosage: TOREM 5-10 MG/DIE AB 12.01.2019 NACH BEDARF, BZW. 10 -20 MG/DIE AB 20.01.2019 ; AS NECESSARY
     Dates: start: 20190112
  13. COVALSARTAN [Concomitant]
     Dates: end: 20190113
  14. PREDNISONE. [Suspect]
     Active Substance: PREDNISONE
     Route: 048
     Dates: end: 20190112
  15. DAFALGAN [Interacting]
     Active Substance: ACETAMINOPHEN
     Dosage: (1)
  16. BECOZYME C FORTE [Concomitant]
  17. MYRTAVEN [Concomitant]
  18. PREDNISONE. [Suspect]
     Active Substance: PREDNISONE
     Route: 048
     Dates: start: 20190118, end: 20190121
  19. TAZOBACTAM [Suspect]
     Active Substance: TAZOBACTAM
     Route: 041
     Dates: start: 20190116, end: 20190124
  20. FOLVITE [Concomitant]
     Active Substance: FOLIC ACID
     Dates: start: 201410, end: 20190111
  21. DIGOXIN. [Concomitant]
     Active Substance: DIGOXIN
     Dates: start: 20190112, end: 20190121
  22. PREDNISONE. [Suspect]
     Active Substance: PREDNISONE
     Route: 048
     Dates: start: 20190113, end: 20190317
  23. CEFTRIAXONE. [Concomitant]
     Active Substance: CEFTRIAXONE
     Dates: start: 20190113, end: 20190115
  24. CO AMOXI [Concomitant]
     Dates: start: 20190115, end: 20190116

REACTIONS (3)
  - Pancytopenia [Recovered/Resolved]
  - Upper gastrointestinal haemorrhage [Recovered/Resolved]
  - Drug interaction [Recovered/Resolved]

NARRATIVE: CASE EVENT DATE: 20190111
